FAERS Safety Report 24201161 (Version 1)
Quarter: 2024Q3

REPORT INFORMATION
  Report Type: Spontaneous
  Country: US (occurrence: US)
  Receive Date: 20240812
  Receipt Date: 20240812
  Transmission Date: 20241016
  Serious: No
  Sender: PFIZER
  Company Number: US-PFIZER INC-202400234005

PATIENT
  Age: 30 Year
  Sex: Male

DRUGS (2)
  1. TESTOSTERONE CYPIONATE [Suspect]
     Active Substance: TESTOSTERONE CYPIONATE
     Dosage: 0.3 MG, INJECTED EVERY FRIDAY
  2. THYROXINE [Concomitant]
     Active Substance: LEVOTHYROXINE
     Dosage: STATES HIS DOSE IS 137; TAKES ONE TABLET ONCE A DAY

REACTIONS (1)
  - Drug ineffective [Unknown]
